FAERS Safety Report 12020199 (Version 1)
Quarter: 2016Q1

REPORT INFORMATION
  Report Type: Spontaneous
  Country: US (occurrence: US)
  Receive Date: 20160206
  Receipt Date: 20160206
  Transmission Date: 20160526
  Serious: No
  Sender: FDA-Public Use
  Company Number: US-009507513-1602USA002664

PATIENT
  Sex: Female

DRUGS (2)
  1. SIMVASTATIN TABLETS, USP [Suspect]
     Active Substance: SIMVASTATIN
     Indication: BLOOD CHOLESTEROL ABNORMAL
     Dosage: UNK
     Route: 048
     Dates: start: 2014, end: 2015
  2. METOPROLOL. [Concomitant]
     Active Substance: METOPROLOL
     Dosage: UNSPECIFIED DOSE

REACTIONS (1)
  - Arthralgia [Not Recovered/Not Resolved]
